FAERS Safety Report 5027288-0 (Version None)
Quarter: 2006Q2

REPORT INFORMATION
  Report Type: 
  Country: None (occurrence: None)
  Receive Date: 20060615
  Receipt Date: 20060331
  Transmission Date: 20061013
  Serious: Yes (Other)
  Sender: FDA-Public Use
  Company Number: DE-ABBOTT-06P-062-0329597-00

PATIENT
  Sex: Male

DRUGS (11)
  1. KLACID [Suspect]
     Indication: TRACHEOBRONCHITIS
     Route: 042
     Dates: start: 20051214, end: 20051214
  2. CEFTRIAXONE [Concomitant]
     Indication: TRACHEOBRONCHITIS
     Route: 042
  3. CEFTRIAXONE [Concomitant]
     Route: 042
  4. CLINDAMYCIN [Concomitant]
     Indication: TRACHEOBRONCHITIS
  5. COBALAMIN [Concomitant]
     Indication: POISONING
  6. ENOXAPARIN SODIUM [Concomitant]
     Indication: DRUG USE FOR UNKNOWN INDICATION
     Route: 058
     Dates: start: 20051201
  7. ACETYLCYSTEINE [Concomitant]
     Indication: DRUG USE FOR UNKNOWN INDICATION
     Route: 048
     Dates: start: 20051201
  8. PANTOPRAZOLE [Concomitant]
     Indication: DRUG USE FOR UNKNOWN INDICATION
     Route: 048
     Dates: start: 20051201
  9. FLUNITRAZEPAM [Concomitant]
     Indication: DRUG USE FOR UNKNOWN INDICATION
     Route: 048
     Dates: start: 20051201
  10. BEPANTHEN [Concomitant]
     Indication: DRUG USE FOR UNKNOWN INDICATION
     Route: 047
     Dates: start: 20051201
  11. LOPERAMIDE [Concomitant]
     Indication: DRUG USE FOR UNKNOWN INDICATION
     Dates: start: 20051201

REACTIONS (8)
  - ARTHRALGIA [None]
  - COGNITIVE DISORDER [None]
  - DELIRIUM [None]
  - DIARRHOEA [None]
  - ELECTROCARDIOGRAM QT PROLONGED [None]
  - MOOD ALTERED [None]
  - THINKING ABNORMAL [None]
  - VENTRICULAR FIBRILLATION [None]
